FAERS Safety Report 4774525-3 (Version None)
Quarter: 2005Q3

REPORT INFORMATION
  Report Type: 
  Country: None (occurrence: None)
  Receive Date: 20050919
  Receipt Date: 20050919
  Transmission Date: 20060218
  Serious: Yes (Other)
  Sender: FDA-Public Use
  Company Number: None

PATIENT
  Sex: Male
  Weight: 77.1115 kg

DRUGS (2)
  1. ACCUTANE [Suspect]
     Indication: ACNE
     Dosage: 40 MG 2 TIMES A DAY
     Dates: start: 20010626, end: 20020401
  2. MULTI-VITAMIN [Concomitant]

REACTIONS (11)
  - ABNORMAL BEHAVIOUR [None]
  - DISTURBANCE IN ATTENTION [None]
  - HALLUCINATION, AUDITORY [None]
  - IMPAIRED WORK ABILITY [None]
  - IMPRISONMENT [None]
  - IRRITABILITY [None]
  - JAUNDICE [None]
  - LIBIDO INCREASED [None]
  - PERSONALITY CHANGE [None]
  - PSYCHOTIC DISORDER [None]
  - THINKING ABNORMAL [None]
